FAERS Safety Report 26073113 (Version 1)
Quarter: 2025Q4

REPORT INFORMATION
  Report Type: Report from Study
  Country: CN (occurrence: CN)
  Receive Date: 20251121
  Receipt Date: 20251121
  Transmission Date: 20260117
  Serious: Yes (Other)
  Sender: ROCHE
  Company Number: CN-ROCHE-10000147734

PATIENT
  Age: 53 Year
  Sex: Male
  Weight: 50 kg

DRUGS (49)
  1. MABTHERA [Suspect]
     Active Substance: RITUXIMAB
     Indication: Diffuse large B-cell lymphoma
     Route: 042
     Dates: start: 20241112, end: 20241112
  2. POLATUZUMAB VEDOTIN [Suspect]
     Active Substance: POLATUZUMAB VEDOTIN
     Indication: Diffuse large B-cell lymphoma
     Route: 042
     Dates: start: 20241111, end: 20241111
  3. THIOTEPA [Suspect]
     Active Substance: THIOTEPA
     Indication: Diffuse large B-cell lymphoma
     Dosage: START DATE: 03-DEC-2024
     Route: 042
     Dates: end: 20241203
  4. CYCLOPHOSPHAMIDE [Suspect]
     Active Substance: CYCLOPHOSPHAMIDE
     Indication: Diffuse large B-cell lymphoma
     Route: 042
     Dates: start: 20241110, end: 20241110
  5. CYCLOPHOSPHAMIDE [Suspect]
     Active Substance: CYCLOPHOSPHAMIDE
     Route: 042
     Dates: start: 20241111, end: 20241111
  6. DOXORUBICIN [Suspect]
     Active Substance: DOXORUBICIN
     Indication: Diffuse large B-cell lymphoma
     Route: 042
     Dates: start: 20241203, end: 20241203
  7. DOXORUBICIN [Suspect]
     Active Substance: DOXORUBICIN
     Route: 042
     Dates: start: 20241111, end: 20241116
  8. VINCRISTINE [Suspect]
     Active Substance: VINCRISTINE
     Indication: Diffuse large B-cell lymphoma
     Route: 042
     Dates: start: 20241109, end: 20241109
  9. DEXAMETHASONE [Suspect]
     Active Substance: DEXAMETHASONE
     Indication: Diffuse large B-cell lymphoma
     Route: 042
     Dates: start: 20241203, end: 20241207
  10. DEXAMETHASONE [Suspect]
     Active Substance: DEXAMETHASONE
     Route: 042
     Dates: start: 20241108, end: 20241116
  11. ACETAMINOPHEN\DIHYDROCODEINE BITARTRATE [Concomitant]
     Active Substance: ACETAMINOPHEN\DIHYDROCODEINE BITARTRATE
     Route: 048
     Dates: start: 20241109, end: 20241109
  12. FENTANYL [Concomitant]
     Active Substance: FENTANYL
     Indication: Pain
     Route: 050
     Dates: start: 20241108, end: 20241108
  13. DEXAMETHASONE [Concomitant]
     Active Substance: DEXAMETHASONE
     Route: 042
     Dates: start: 20241108, end: 20241108
  14. ESOMEPRAZOLE [Concomitant]
     Active Substance: ESOMEPRAZOLE
     Route: 042
     Dates: start: 20241108, end: 20241112
  15. CEFOPERAZONE SODIUM\SULBACTAM SODIUM [Concomitant]
     Active Substance: CEFOPERAZONE SODIUM\SULBACTAM SODIUM
     Indication: Infection prophylaxis
     Route: 042
     Dates: start: 20241109, end: 20241113
  16. SODIUM BICARBONATE [Concomitant]
     Active Substance: SODIUM BICARBONATE
     Route: 042
     Dates: start: 20241111, end: 20241114
  17. RABEPRAZOLE SODIUM [Concomitant]
     Active Substance: RABEPRAZOLE SODIUM
     Route: 042
     Dates: start: 20241113, end: 20241125
  18. MEROPENEM [Concomitant]
     Active Substance: MEROPENEM
     Indication: Infection prophylaxis
     Route: 042
     Dates: start: 20241113, end: 20241123
  19. CASPOFUNGIN [Concomitant]
     Active Substance: CASPOFUNGIN
     Indication: Infection prophylaxis
     Route: 042
     Dates: start: 20241113, end: 20241125
  20. 5% Sodium Bicarbonate [Concomitant]
     Route: 042
     Dates: start: 20241115, end: 20241125
  21. VITAMIN B6 [Concomitant]
     Active Substance: PYRIDOXINE HYDROCHLORIDE
     Route: 048
     Dates: start: 20241120, end: 20241125
  22. OXYCODONE HYDROCHLORIDE [Concomitant]
     Active Substance: OXYCODONE HYDROCHLORIDE
     Route: 048
     Dates: start: 20241119, end: 20241121
  23. GRANULOCYTE COLONY-STIMULATING FACTOR NOS [Concomitant]
     Active Substance: GRANULOCYTE COLONY-STIMULATING FACTOR NOS
     Route: 055
     Dates: start: 20241120, end: 20241123
  24. GRANULOCYTE COLONY-STIMULATING FACTOR NOS [Concomitant]
     Active Substance: GRANULOCYTE COLONY-STIMULATING FACTOR NOS
     Route: 055
     Dates: start: 20241118, end: 20241118
  25. GRANULOCYTE COLONY-STIMULATING FACTOR NOS [Concomitant]
     Active Substance: GRANULOCYTE COLONY-STIMULATING FACTOR NOS
     Route: 055
     Dates: start: 20241120, end: 20241123
  26. METHYLCOBALAMIN [Concomitant]
     Active Substance: METHYLCOBALAMIN
     Route: 048
     Dates: start: 20241122, end: 20241125
  27. PREGABALIN [Concomitant]
     Active Substance: PREGABALIN
     Route: 048
     Dates: start: 20241123, end: 20241125
  28. AMINO ACIDS, SOURCE UNSPECIFIED [Concomitant]
     Active Substance: AMINO ACIDS, SOURCE UNSPECIFIED
     Route: 042
     Dates: start: 20241123, end: 20241125
  29. DEXTROSE [Concomitant]
     Active Substance: DEXTROSE MONOHYDRATE
     Route: 042
     Dates: start: 20241123, end: 20241125
  30. POTASSIUM CHLORIDE [Concomitant]
     Active Substance: POTASSIUM CHLORIDE
     Indication: Electrolyte substitution therapy
     Route: 042
     Dates: start: 20241123, end: 20241125
  31. 10% Concentrated sodium chloride [Concomitant]
     Indication: Electrolyte substitution therapy
     Route: 042
     Dates: start: 20241123, end: 20241125
  32. MEPERIDINE [Concomitant]
     Active Substance: MEPERIDINE
     Route: 030
     Dates: start: 20241108, end: 20241108
  33. MEPERIDINE [Concomitant]
     Active Substance: MEPERIDINE
     Route: 030
     Dates: start: 20241111, end: 20241111
  34. MEPERIDINE [Concomitant]
     Active Substance: MEPERIDINE
     Route: 030
     Dates: start: 20241115, end: 20241115
  35. Fat Emulsion Amino Acids and Glucose [Concomitant]
     Route: 042
     Dates: start: 20241108, end: 20241122
  36. MOUSE NERVE GROWTH FACTOR [Concomitant]
  37. DIPHENHYDRAMINE [Concomitant]
     Active Substance: DIPHENHYDRAMINE
  38. DEZOCINE [Concomitant]
     Active Substance: DEZOCINE
  39. TROPISETRON [Concomitant]
     Active Substance: TROPISETRON
  40. NIFEDIPINE [Concomitant]
     Active Substance: NIFEDIPINE
  41. LACTULOSE [Concomitant]
     Active Substance: LACTULOSE
  42. ONDANSETRON [Concomitant]
     Active Substance: ONDANSETRON
  43. ESZOPICLONE [Concomitant]
     Active Substance: ESZOPICLONE
  44. FUROSEMIDE [Concomitant]
     Active Substance: FUROSEMIDE
  45. CALCIUM GLUCONATE [Concomitant]
     Active Substance: CALCIUM GLUCONATE
  46. LUSPATERCEPT [Concomitant]
     Active Substance: LUSPATERCEPT
  47. PENTAZOCINE [Concomitant]
     Active Substance: PENTAZOCINE
  48. Human Erythropoietin [Concomitant]
  49. POTASSIUM CITRATE [Concomitant]
     Active Substance: POTASSIUM CITRATE

REACTIONS (2)
  - Electrolyte imbalance [Not Recovered/Not Resolved]
  - White blood cell count decreased [Recovered/Resolved]

NARRATIVE: CASE EVENT DATE: 20241114
